FAERS Safety Report 14699394 (Version 1)
Quarter: 2018Q1

REPORT INFORMATION
  Report Type: Spontaneous
  Country: US (occurrence: US)
  Receive Date: 20180330
  Receipt Date: 20180330
  Transmission Date: 20180509
  Serious: No
  Sender: FDA-Public Use
  Company Number: US-SHIRE-US201811439

PATIENT

DRUGS (1)
  1. XIIDRA [Suspect]
     Active Substance: LIFITEGRAST
     Indication: DRY EYE
     Dosage: 1 GTT, 2X/DAY:BID
     Route: 065
     Dates: start: 20180314

REACTIONS (6)
  - Instillation site vesicles [Unknown]
  - Instillation site erythema [Unknown]
  - Foreign body sensation in eyes [Unknown]
  - Instillation site pain [Unknown]
  - Dysgeusia [Recovered/Resolved]
  - Vision blurred [Recovered/Resolved]
